FAERS Safety Report 6071894-1 (Version None)
Quarter: 2009Q1

REPORT INFORMATION
  Report Type: 
  Country: None (occurrence: None)
  Receive Date: 20090210
  Receipt Date: 20090206
  Transmission Date: 20090719
  Serious: Yes (Other)
  Sender: FDA-Public Use
  Company Number: US-BAYER-200910342BCC

PATIENT
  Age: 74 Year
  Sex: Female
  Weight: 83 kg

DRUGS (5)
  1. ASPIRIN [Suspect]
     Indication: ARTERIAL THERAPEUTIC PROCEDURE
     Dosage: TOTAL DAILY DOSE: 650 MG  UNIT DOSE: 325 MG
     Dates: start: 20040101
  2. DIOVAN [Concomitant]
  3. ATENOLOL [Concomitant]
  4. LIPITOR [Concomitant]
  5. ISRADIPINE [Concomitant]

REACTIONS (4)
  - ABDOMINAL PAIN UPPER [None]
  - GASTRIC ULCER HAEMORRHAGE [None]
  - HAEMATOCHEZIA [None]
  - NAUSEA [None]
